FAERS Safety Report 9223350 (Version 1)
Quarter: 2013Q2

REPORT INFORMATION
  Report Type: Spontaneous
  Country: CH (occurrence: CH)
  Receive Date: 20130410
  Receipt Date: 20130410
  Transmission Date: 20140414
  Serious: Yes (Hospitalization)
  Sender: FDA-Public Use
  Company Number: CH-VERTEX PHARMACEUTICALS INC.-2013-004683

PATIENT
  Age: 44 Year
  Sex: Male

DRUGS (8)
  1. INCIVO [Suspect]
     Indication: HEPATITIS C
     Dosage: 1125 MG, BID
     Route: 048
     Dates: start: 20121217, end: 20130124
  2. COPEGUS [Suspect]
     Indication: PRODUCT USED FOR UNKNOWN INDICATION
     Dosage: DOSAGE FORM: COATED TABLET
     Route: 048
     Dates: start: 20121217, end: 20130124
  3. PEGASYS [Suspect]
     Indication: PRODUCT USED FOR UNKNOWN INDICATION
     Dosage: DOSAGE FORM: INJECTION
     Route: 058
     Dates: start: 20121217, end: 20130124
  4. CELLCEPT [Suspect]
     Indication: PRODUCT USED FOR UNKNOWN INDICATION
     Dosage: DOSAGE FORM: CAPSULE
     Route: 048
     Dates: start: 20120625, end: 20130115
  5. VALCYTE [Suspect]
     Indication: CYTOMEGALOVIRUS INFECTION
     Dosage: DOSAGE FORM: COATED TABLET
     Route: 048
     Dates: start: 20121123, end: 20130121
  6. PROGRAF [Suspect]
     Indication: PRODUCT USED FOR UNKNOWN INDICATION
     Dosage: DOSAGE FORM: CAPSULE, REDUCED
     Route: 048
     Dates: start: 201206, end: 201212
  7. PROGRAF [Suspect]
     Dosage: DOSAGE FORM: CAPSULE
     Route: 048
  8. WELLVONE [Suspect]
     Indication: PRODUCT USED FOR UNKNOWN INDICATION
     Dosage: DOSAGE FORM: LIQUID
     Route: 048
     Dates: start: 201212, end: 20130121

REACTIONS (5)
  - Pancytopenia [Recovered/Resolved]
  - Pneumocystis jirovecii infection [Recovered/Resolved]
  - Hepatitis cholestatic [Unknown]
  - Pyrexia [Unknown]
  - Off label use [Unknown]
